FAERS Safety Report 17123261 (Version 1)
Quarter: 2019Q4

REPORT INFORMATION
  Report Type: Spontaneous
  Country: DE (occurrence: DE)
  Receive Date: 20191206
  Receipt Date: 20191206
  Transmission Date: 20200122
  Serious: Yes (Other)
  Sender: FDA-Public Use
  Company Number: DE-HQ SPECIALTY-DE-2019INT000304

PATIENT

DRUGS (5)
  1. CETUXIMAB. [Suspect]
     Active Substance: CETUXIMAB
     Dosage: 250 MG/M2, WEEKLY ON SUBSEQUENT ADMINISTRATIONS, AT DAYS 1, 8 AND 15
     Route: 042
  2. CISPLATIN. [Suspect]
     Active Substance: CISPLATIN
     Indication: SQUAMOUS CELL CARCINOMA OF HEAD AND NECK
     Dosage: 100 MG/M2, UNK, DAY 1
     Route: 042
  3. CETUXIMAB. [Suspect]
     Active Substance: CETUXIMAB
     Indication: SQUAMOUS CELL CARCINOMA OF HEAD AND NECK
     Dosage: 400 MG/M2, DAY 1 OF CYCLE 1, AT DAYS 1, 8 AND 15
     Route: 042
  4. CETUXIMAB. [Suspect]
     Active Substance: CETUXIMAB
     Dosage: 500 MG/M2, MAINTENANCE THERAPY EVERY 2 WEEKS AFTER CHEMOTHERAPY DISCONTINUATION
     Route: 042
  5. 5-FU                               /00098801/ [Suspect]
     Active Substance: FLUOROURACIL
     Indication: SQUAMOUS CELL CARCINOMA OF HEAD AND NECK
     Dosage: 1000 MG/M2/DAY, CONTUNIOUS I.V. INFUSION, DAYS 1-4
     Route: 042

REACTIONS (1)
  - Colitis [Unknown]
